FAERS Safety Report 13005454 (Version 2)
Quarter: 2017Q1

REPORT INFORMATION
  Report Type: Spontaneous
  Country: JP (occurrence: JP)
  Receive Date: 20161207
  Receipt Date: 20170116
  Transmission Date: 20170428
  Serious: Yes (Hospitalization)
  Sender: FDA-Public Use
  Company Number: JP-ELI_LILLY_AND_COMPANY-JP201612000547

PATIENT
  Age: 60 Year
  Sex: Male
  Weight: 65.8 kg

DRUGS (18)
  1. IRINOTECAN [Suspect]
     Active Substance: IRINOTECAN
     Dosage: 200 MG, OTHER
     Route: 042
     Dates: start: 20161018, end: 20161108
  2. GLACTIV [Concomitant]
     Active Substance: SITAGLIPTIN
     Indication: DIABETES MELLITUS
     Dosage: 50 MG, UNK
     Route: 048
     Dates: start: 201505
  3. CYRAMZA [Suspect]
     Active Substance: RAMUCIRUMAB
     Indication: RECTAL CANCER RECURRENT
     Dosage: 500 MG, OTHER
     Route: 042
     Dates: start: 20161018, end: 20161108
  4. 5 FU [Suspect]
     Active Substance: FLUOROURACIL
     Dosage: 500 MG, OTHER
     Route: 042
     Dates: start: 20161018, end: 20161108
  5. EMEND [Concomitant]
     Active Substance: APREPITANT
     Dosage: 50 MG, QD
     Route: 048
     Dates: start: 20160112, end: 20161110
  6. LYRICA [Concomitant]
     Active Substance: PREGABALIN
     Indication: NEURALGIA
     Dosage: 75 MG, BID
     Route: 048
     Dates: start: 20160719
  7. 5 FU [Suspect]
     Active Substance: FLUOROURACIL
     Dosage: 3880 MG, OTHER
     Route: 042
     Dates: start: 20160524, end: 20161003
  8. LEVOFOLINATE [Concomitant]
     Active Substance: LEVOLEUCOVORIN CALCIUM
     Indication: RECTAL CANCER RECURRENT
     Dosage: 300 MG, OTHER
     Route: 042
     Dates: start: 20160112, end: 20161108
  9. LOXOPROFEN SODIUM [Concomitant]
     Active Substance: LOXOPROFEN SODIUM
     Dosage: 60 MG, TID
     Route: 048
     Dates: start: 20161006
  10. EMEND [Concomitant]
     Active Substance: APREPITANT
     Indication: PROPHYLAXIS OF NAUSEA AND VOMITING
     Dosage: 125 MG, UNK
     Route: 048
     Dates: start: 20160112, end: 20161108
  11. DECADRON [Concomitant]
     Active Substance: DEXAMETHASONE
     Indication: PROPHYLAXIS OF NAUSEA AND VOMITING
     Dosage: 2 MG, BID
     Route: 048
     Dates: start: 20160113, end: 20161110
  12. SAMSCA [Concomitant]
     Active Substance: TOLVAPTAN
     Dosage: 15 MG, UNK
     Route: 048
     Dates: start: 20161011
  13. 5 FU [Suspect]
     Active Substance: FLUOROURACIL
     Indication: RECTAL CANCER RECURRENT
     Dosage: 600 MG, OTHER
     Route: 042
     Dates: start: 20160112, end: 20160509
  14. 5 FU [Suspect]
     Active Substance: FLUOROURACIL
     Dosage: 3600 MG, OTHER
     Route: 042
     Dates: start: 20160112, end: 20160509
  15. 5 FU [Suspect]
     Active Substance: FLUOROURACIL
     Dosage: 640 MG, OTHER
     Route: 042
     Dates: start: 20160524, end: 20161003
  16. 5 FU [Suspect]
     Active Substance: FLUOROURACIL
     Dosage: 3000 MG, OTHER
     Route: 042
     Dates: start: 20161018, end: 20161110
  17. IRINOTECAN [Suspect]
     Active Substance: IRINOTECAN
     Indication: RECTAL CANCER RECURRENT
     Dosage: 240 MG, OTHER
     Route: 042
     Dates: start: 20160524, end: 20161003
  18. NEXIUM [Concomitant]
     Active Substance: ESOMEPRAZOLE MAGNESIUM
     Dosage: 20 MG, UNK
     Route: 048
     Dates: start: 20161006

REACTIONS (1)
  - Cardiac failure [Recovering/Resolving]

NARRATIVE: CASE EVENT DATE: 20161120
